FAERS Safety Report 8766413 (Version 1)
Quarter: 2012Q4

REPORT INFORMATION
  Report Type: Report from Study
  Country: DE (occurrence: DE)
  Receive Date: 20120904
  Receipt Date: 20120904
  Transmission Date: 20130627
  Serious: Yes (Hospitalization, Other)
  Sender: FDA-Public Use
  Company Number: DE-ROCHE-749282

PATIENT
  Age: 59 Year
  Sex: Female
  Weight: 75 kg

DRUGS (13)
  1. MABTHERA [Suspect]
     Indication: RHEUMATOID ARTHRITIS
     Dosage: 2 APPLICATIONS RECEIVED
     Route: 042
  2. METHYLPREDNISOLONE [Suspect]
     Indication: RHEUMATOID ARTHRITIS
     Dosage: PRIOR TO RITUXIMAB
     Route: 042
     Dates: start: 20101006, end: 20101006
  3. METHYLPREDNISOLONE [Suspect]
     Dosage: PRIOR TO RITUXIMAB
     Route: 042
     Dates: start: 20101019, end: 20101019
  4. METHYLPREDNISOLONE [Suspect]
     Route: 042
  5. ADALIMUMAB [Suspect]
     Indication: RHEUMATOID ARTHRITIS
     Route: 065
     Dates: start: 200906, end: 20100907
  6. FENISTIL [Concomitant]
     Indication: PREMEDICATION
     Dosage: 2 APPLICATIONS RECEIVED
     Route: 065
  7. PANTOPRAZOLE [Concomitant]
     Route: 065
  8. NOVALGIN [Concomitant]
     Route: 065
  9. TILIDINE [Concomitant]
     Route: 065
  10. ARCOXIA [Concomitant]
     Route: 065
     Dates: start: 20101019, end: 20101019
  11. ARCOXIA [Concomitant]
     Route: 065
     Dates: start: 20101027, end: 20101027
  12. PREDNISOLON [Concomitant]
     Route: 065
     Dates: start: 20101020, end: 20101020
  13. PREDNISOLON [Concomitant]
     Route: 065
     Dates: start: 20101028, end: 20101028

REACTIONS (6)
  - Dyspnoea exertional [Recovered/Resolved]
  - Fibrin D dimer increased [Recovered/Resolved]
  - Chest discomfort [Recovered/Resolved]
  - Pain in extremity [Recovered/Resolved]
  - Pleural effusion [Unknown]
  - Nightmare [Recovered/Resolved]
